FAERS Safety Report 10862216 (Version 2)
Quarter: 2015Q4

REPORT INFORMATION
  Report Type: Spontaneous
  Country: US (occurrence: US)
  Receive Date: 20150224
  Receipt Date: 20151002
  Transmission Date: 20160304
  Serious: Yes (Death, Other)
  Sender: FDA-Public Use
  Company Number: US-ABBVIE-15P-163-1351137-00

PATIENT
  Sex: Male

DRUGS (1)
  1. ANDROGEL [Suspect]
     Active Substance: TESTOSTERONE
     Indication: BLOOD TESTOSTERONE DECREASED
     Route: 061
     Dates: start: 2013, end: 201410

REACTIONS (11)
  - Deep vein thrombosis [Unknown]
  - Economic problem [Unknown]
  - Injury [Unknown]
  - Cerebrovascular accident [Unknown]
  - Emotional disorder [Unknown]
  - Pain [Unknown]
  - Physical disability [Unknown]
  - Impaired work ability [Unknown]
  - Emotional distress [Unknown]
  - Death [Fatal]
  - Anxiety [Unknown]

NARRATIVE: CASE EVENT DATE: 2014
